FAERS Safety Report 14455078 (Version 2)
Quarter: 2018Q1

REPORT INFORMATION
  Report Type: Report from Study
  Country: US (occurrence: US)
  Receive Date: 20180129
  Receipt Date: 20180301
  Transmission Date: 20180509
  Serious: Yes (Hospitalization)
  Sender: FDA-Public Use
  Company Number: US-ACTELION-A-US2017-164816

PATIENT
  Age: 86 Year
  Sex: Female
  Weight: 79.37 kg

DRUGS (4)
  1. OPSUMIT [Suspect]
     Active Substance: MACITENTAN
     Indication: PULMONARY ARTERIAL HYPERTENSION
     Dosage: 10 MG, QD
     Route: 048
  2. WARFARIN [Concomitant]
     Active Substance: WARFARIN
  3. UPTRAVI [Suspect]
     Active Substance: SELEXIPAG
     Indication: PULMONARY ARTERIAL HYPERTENSION
     Dosage: 200 MCG, BID
     Route: 048
     Dates: end: 20171215
  4. ADEMPAS [Concomitant]
     Active Substance: RIOCIGUAT

REACTIONS (9)
  - Faeces discoloured [Unknown]
  - Asthenia [Unknown]
  - Transfusion [Unknown]
  - Dyspepsia [Unknown]
  - Bronchitis [Unknown]
  - Blood count abnormal [Unknown]
  - Eructation [Unknown]
  - Joint swelling [Not Recovered/Not Resolved]
  - Gastric disorder [Unknown]
